FAERS Safety Report 4331484-5 (Version None)
Quarter: 2004Q2

REPORT INFORMATION
  Report Type: 
  Country: None (occurrence: None)
  Receive Date: 20040401
  Receipt Date: 20040401
  Transmission Date: 20050107
  Serious: Yes (Hospitalization)
  Sender: FDA-Public Use
  Company Number: None

PATIENT
  Sex: Female

DRUGS (1)
  1. CELEXA [Suspect]
     Dosage: 20 MG QD ORAL
     Route: 048

REACTIONS (1)
  - HYPONATRAEMIA [None]
